FAERS Safety Report 21687951 (Version 1)
Quarter: 2022Q4

REPORT INFORMATION
  Report Type: Spontaneous
  Country: US (occurrence: US)
  Receive Date: 20221206
  Receipt Date: 20221206
  Transmission Date: 20230113
  Serious: Yes (Hospitalization)
  Sender: FDA-Public Use
  Company Number: US-MYLANLABS-2022M1136187

PATIENT
  Age: 58 Year
  Sex: Male

DRUGS (1)
  1. ACETAZOLAMIDE [Suspect]
     Active Substance: ACETAZOLAMIDE
     Indication: Product used for unknown indication
     Dosage: 250 MILLIGRAM, TID; 250 MG THRICE A DAY
     Route: 065

REACTIONS (3)
  - Neurotoxicity [Recovered/Resolved]
  - Paralysis [Recovered/Resolved]
  - Toxicity to various agents [Recovered/Resolved]
